FAERS Safety Report 7537243-4 (Version None)
Quarter: 2011Q2

REPORT INFORMATION
  Report Type: 
  Country: None (occurrence: None)
  Receive Date: 20110524
  Receipt Date: 20110413
  Transmission Date: 20111010
  Serious: No
  Sender: FDA-Public Use
  Company Number: 031249

PATIENT
  Sex: Female

DRUGS (1)
  1. CIMZIA [Suspect]
     Indication: CROHN'S DISEASE
     Dosage: 400MG 1X/4 WEEKS SUBCUTANEOUS
     Route: 058
     Dates: start: 20090721

REACTIONS (3)
  - INJECTION SITE PAIN [None]
  - FATIGUE [None]
  - ABDOMINAL PAIN [None]
